FAERS Safety Report 17544965 (Version 1)
Quarter: 2020Q1

REPORT INFORMATION
  Report Type: Spontaneous
  Country: US (occurrence: US)
  Receive Date: 20200316
  Receipt Date: 20200316
  Transmission Date: 20200409
  Serious: Yes (Other)
  Sender: FDA-Public Use
  Company Number: US-TAKEDA-2020TUS013537

PATIENT
  Age: 81 Year
  Sex: Male

DRUGS (1)
  1. ENTYVIO [Suspect]
     Active Substance: VEDOLIZUMAB
     Indication: CROHN^S DISEASE
     Dosage: UNK
     Route: 042
     Dates: start: 20200304

REACTIONS (6)
  - Confusional state [Unknown]
  - Balance disorder [Unknown]
  - Incontinence [Unknown]
  - Fall [Unknown]
  - Tremor [Unknown]
  - Head injury [Unknown]

NARRATIVE: CASE EVENT DATE: 20200308
